FAERS Safety Report 5945758-5 (Version None)
Quarter: 2008Q4

REPORT INFORMATION
  Report Type: 
  Country: None (occurrence: None)
  Receive Date: 20081106
  Receipt Date: 20081023
  Transmission Date: 20090506
  Serious: Yes (Hospitalization)
  Sender: FDA-Public Use
  Company Number: HECT-1000024

PATIENT
  Age: 54 Year
  Sex: Male

DRUGS (1)
  1. HECTOROL [Suspect]
     Indication: HYPOPARATHYROIDISM
     Dosage: 0.5 MCG, QD, ORAL
     Route: 048
     Dates: start: 20080801

REACTIONS (3)
  - BLOOD CALCIUM DECREASED [None]
  - DIZZINESS [None]
  - INNER EAR DISORDER [None]
